FAERS Safety Report 10439259 (Version 1)
Quarter: 2014Q3

REPORT INFORMATION
  Report Type: Spontaneous
  Country: US (occurrence: US)
  Receive Date: 20140908
  Receipt Date: 20140908
  Transmission Date: 20150326
  Serious: No
  Sender: FDA-Public Use
  Company Number: US-BRISTOL-MYERS SQUIBB COMPANY-19196492

PATIENT
  Age: 62 Year
  Sex: Male

DRUGS (1)
  1. ABILIFY [Suspect]
     Active Substance: ARIPIPRAZOLE
     Indication: BIPOLAR DISORDER

REACTIONS (6)
  - Muscle twitching [Unknown]
  - Tongue disorder [Unknown]
  - Strabismus [Unknown]
  - Movement disorder [Unknown]
  - Dyskinesia [Unknown]
  - Restlessness [Unknown]
